FAERS Safety Report 24096452 (Version 1)
Quarter: 2024Q3

REPORT INFORMATION
  Report Type: Spontaneous
  Country: US (occurrence: US)
  Receive Date: 20240716
  Receipt Date: 20240716
  Transmission Date: 20241017
  Serious: Yes (Other)
  Sender: MYLAN
  Company Number: US-MYLANLABS-2024M1065361

PATIENT
  Age: 68 Year
  Sex: Male

DRUGS (7)
  1. DOCETAXEL [Suspect]
     Active Substance: DOCETAXEL\DOCETAXEL ANHYDROUS
     Indication: Prostate cancer
     Dosage: 75 MILLIGRAM/SQ. METER, Q21D; INFUSION
     Route: 065
  2. DOCETAXEL [Suspect]
     Active Substance: DOCETAXEL\DOCETAXEL ANHYDROUS
     Indication: Metastases to bone
  3. DOCETAXEL [Suspect]
     Active Substance: DOCETAXEL\DOCETAXEL ANHYDROUS
     Indication: Metastases to lymph nodes
  4. PREDNISONE [Concomitant]
     Active Substance: PREDNISONE
     Indication: Paraneoplastic dermatomyositis
     Dosage: UNK
     Route: 065
  5. HYDROXYCHLOROQUINE [Concomitant]
     Active Substance: HYDROXYCHLOROQUINE
     Indication: Paraneoplastic dermatomyositis
     Dosage: UNK
     Route: 065
  6. Immunoglobulin [Concomitant]
     Indication: Paraneoplastic dermatomyositis
     Dosage: UNK
     Route: 042
  7. Immunoglobulin [Concomitant]
     Dosage: UNK, DOSE REDUCED
     Route: 042

REACTIONS (3)
  - Recall phenomenon [Recovered/Resolved]
  - Paraneoplastic dermatomyositis [Recovered/Resolved]
  - Disease recurrence [Recovered/Resolved]
